FAERS Safety Report 14141733 (Version 5)
Quarter: 2018Q2

REPORT INFORMATION
  Report Type: Report from Study
  Country: None (occurrence: US)
  Receive Date: 20171030
  Receipt Date: 20180501
  Transmission Date: 20180711
  Serious: Yes (Death, Hospitalization, Other)
  Sender: FDA-Public Use
  Company Number: US-ABBVIE-17K-163-2143795-00

PATIENT
  Age: 35 Year
  Sex: Female
  Weight: 97.61 kg

DRUGS (2)
  1. HUMIRA [Suspect]
     Active Substance: ADALIMUMAB
     Route: 058
     Dates: start: 2017
  2. HUMIRA [Suspect]
     Active Substance: ADALIMUMAB
     Indication: CROHN^S DISEASE
     Dosage: LOADING DOSE
     Route: 058
     Dates: start: 20171019, end: 20171019

REACTIONS (4)
  - Small intestinal obstruction [Not Recovered/Not Resolved]
  - Pulmonary embolism [Recovered/Resolved]
  - Nausea [Recovering/Resolving]
  - Thrombosis [Fatal]

NARRATIVE: CASE EVENT DATE: 20171023
